FAERS Safety Report 11118151 (Version 1)
Quarter: 2015Q2

REPORT INFORMATION
  Report Type: Spontaneous
  Country: US (occurrence: None)
  Receive Date: 20150515
  Receipt Date: 20150515
  Transmission Date: 20150821
  Serious: No
  Sender: FDA-Public Use
  Company Number: None

PATIENT
  Age: 64 Year
  Sex: Female
  Weight: 60 kg

DRUGS (16)
  1. MONTELUKAST [Suspect]
     Active Substance: MONTELUKAST SODIUM
     Indication: RHINITIS ALLERGIC
     Dosage: 10 MG ONE DOSE ONLY
     Route: 048
     Dates: start: 20150424
  2. POLYETHYLENE GLYCOL [Concomitant]
     Active Substance: POLYETHYLENE GLYCOLS
  3. SELENIUM SULFIDE. [Concomitant]
     Active Substance: SELENIUM SULFIDE
  4. THERA M PLUS [Concomitant]
  5. CALCIUM CARB [Concomitant]
  6. MONTELUKAST [Concomitant]
     Active Substance: MONTELUKAST SODIUM
  7. MINERAL OIL ENEMA [Concomitant]
  8. MAGNESIUM GLUC [Concomitant]
  9. PHENOBARBITAL. [Concomitant]
     Active Substance: PHENOBARBITAL
  10. VITAMIN D3 [Concomitant]
     Active Substance: CHOLECALCIFEROL
  11. BISACODYL. [Concomitant]
     Active Substance: BISACODYL
  12. CLOTRIMAZOLE. [Concomitant]
     Active Substance: CLOTRIMAZOLE
  13. MICONAZOLE [Concomitant]
     Active Substance: MICONAZOLE
  14. ZOLEDRONIC ACID [Concomitant]
     Active Substance: ZOLEDRONIC ACID
  15. NEXIUM [Concomitant]
     Active Substance: ESOMEPRAZOLE MAGNESIUM
  16. ACETAMINOPHEN. [Concomitant]
     Active Substance: ACETAMINOPHEN

REACTIONS (1)
  - Hypersensitivity vasculitis [None]

NARRATIVE: CASE EVENT DATE: 20150424
